FAERS Safety Report 14110923 (Version 3)
Quarter: 2018Q1

REPORT INFORMATION
  Report Type: Spontaneous
  Country: US (occurrence: US)
  Receive Date: 20171020
  Receipt Date: 20180205
  Transmission Date: 20180508
  Serious: Yes (Other)
  Sender: FDA-Public Use
  Company Number: US-BAYER-2017-195325

PATIENT
  Age: 59 Year
  Sex: Male

DRUGS (5)
  1. KOGENATE FS [Suspect]
     Active Substance: ANTIHEMOPHILIC FACTOR, HUMAN RECOMBINANT
     Indication: FACTOR VIII DEFICIENCY
     Dosage: 2700 IU, ONCE TO TREAT ELBOW BLEEDING
     Route: 042
  2. KOGENATE FS [Suspect]
     Active Substance: ANTIHEMOPHILIC FACTOR, HUMAN RECOMBINANT
     Indication: FACTOR VIII DEFICIENCY
     Dosage: 2700 IU, OW
     Route: 042
     Dates: start: 20170202
  3. KOGENATE FS [Suspect]
     Active Substance: ANTIHEMOPHILIC FACTOR, HUMAN RECOMBINANT
     Indication: FACTOR VIII DEFICIENCY
     Dosage: 2 DF, UNK
  4. KOGENATE FS [Suspect]
     Active Substance: ANTIHEMOPHILIC FACTOR, HUMAN RECOMBINANT
     Indication: FACTOR VIII DEFICIENCY
     Dosage: 2700 IU, ONCE PRIOR TU HIS FLU SHOT TO PREVENT BLEEDING
     Route: 042
  5. KOGENATE FS [Suspect]
     Active Substance: ANTIHEMOPHILIC FACTOR, HUMAN RECOMBINANT
     Indication: FACTOR VIII DEFICIENCY
     Dosage: 2700 IU, ONCE TO TREAT FOOT BLEEDING
     Route: 042

REACTIONS (4)
  - Haemarthrosis [None]
  - Haemarthrosis [None]
  - Haemarthrosis [None]
  - Haemorrhage [None]

NARRATIVE: CASE EVENT DATE: 20170911
